FAERS Safety Report 7074909-7 (Version None)
Quarter: 2010Q4

REPORT INFORMATION
  Report Type: 
  Country: None (occurrence: None)
  Receive Date: 20101029
  Receipt Date: 20101018
  Transmission Date: 20110411
  Serious: Yes (Death, Other)
  Sender: FDA-Public Use
  Company Number: SA-GENENTECH-308528

PATIENT

DRUGS (4)
  1. RITUXIMAB [Suspect]
     Indication: IDIOPATHIC THROMBOCYTOPENIC PURPURA
     Dosage: 375 MG/M2, 1/WEEK
     Route: 065
  2. PARACETAMOL [Concomitant]
     Indication: PREMEDICATION
     Dosage: AS PREMEDICATION PRIOR TO RITUXIMAB INFUSION.
  3. HYDROCORTISONE [Concomitant]
     Indication: PREMEDICATION
     Dosage: AS PREMEDICATION PRIOR TO RITUXIMAB INFUSION.
  4. ANTIHISTAMINES [Concomitant]
     Indication: PREMEDICATION
     Dosage: AS PREMEDICATION PRIOR TO RITUXIMAB INFUSION.

REACTIONS (5)
  - CHRONIC LYMPHOCYTIC LEUKAEMIA [None]
  - HYPOTENSION [None]
  - INFUSION RELATED REACTION [None]
  - RENAL FAILURE [None]
  - TREATMENT FAILURE [None]
